FAERS Safety Report 19844894 (Version 1)
Quarter: 2021Q3

REPORT INFORMATION
  Report Type: Spontaneous
  Country: CA (occurrence: CA)
  Receive Date: 20210916
  Receipt Date: 20210916
  Transmission Date: 20211014
  Serious: Yes (Other)
  Sender: FDA-Public Use
  Company Number: NVSC2021CA204772

PATIENT
  Age: 95 Year
  Sex: Female
  Weight: 55.3 kg

DRUGS (1)
  1. SANDOZ LATANOPROST [Suspect]
     Active Substance: LATANOPROST
     Indication: GLAUCOMA
     Dosage: 0.005 %, QD
     Route: 065

REACTIONS (7)
  - Swelling of eyelid [Recovered/Resolved]
  - Hypersensitivity [Recovered/Resolved]
  - Rash pruritic [Recovered/Resolved]
  - Swelling face [Recovered/Resolved]
  - Rash [Recovered/Resolved]
  - Symptom recurrence [Recovered/Resolved]
  - Reaction to preservatives [Recovered/Resolved]
